FAERS Safety Report 5645100-3 (Version None)
Quarter: 2008Q1

REPORT INFORMATION
  Report Type: 
  Country: None (occurrence: None)
  Receive Date: 20080229
  Receipt Date: 20080226
  Transmission Date: 20080703
  Serious: Yes (Hospitalization)
  Sender: FDA-Public Use
  Company Number: GB-ROCHE-543009

PATIENT
  Age: 53 Year
  Sex: Male
  Weight: 89 kg

DRUGS (8)
  1. CAPECITABINE [Suspect]
     Dosage: RECENT DOSE ON 21 JAN 2008
     Route: 065
     Dates: start: 20080114
  2. CISPLATIN [Suspect]
     Dosage: RECENT DOSE ON 14 JAN 2008
     Route: 065
     Dates: start: 20080114
  3. EPIRUBICIN [Suspect]
     Dosage: RECENT DOSE ON 14 JAN 2008
     Route: 065
     Dates: start: 20080114
  4. OMEPRAZOLE [Concomitant]
     Route: 048
     Dates: start: 20080114
  5. DEXAMETHASONE TAB [Concomitant]
     Route: 048
     Dates: start: 20080114, end: 20080116
  6. DOMPERIDONE [Concomitant]
     Route: 048
     Dates: start: 20080114, end: 20080116
  7. CHLORPROMAZINE [Concomitant]
     Route: 048
     Dates: start: 20080116, end: 20080120
  8. CODEINE PHOSPHATE [Concomitant]
     Route: 048
     Dates: start: 20080120, end: 20080120

REACTIONS (1)
  - PERIPHERAL ISCHAEMIA [None]
